FAERS Safety Report 15755092 (Version 1)
Quarter: 2018Q4

REPORT INFORMATION
  Report Type: Spontaneous
  Country: GR (occurrence: GR)
  Receive Date: 20181224
  Receipt Date: 20181224
  Transmission Date: 20190205
  Serious: Yes (Other)
  Sender: FDA-Public Use
  Company Number: GR-ABBVIE-18S-066-2602048-00

PATIENT
  Age: 67 Year
  Sex: Male
  Weight: 75 kg

DRUGS (2)
  1. LIPIDIL [Suspect]
     Active Substance: FENOFIBRATE
     Indication: TYPE IIA HYPERLIPIDAEMIA
     Dosage: 1 DOSAGE FORM, QD
     Route: 048
     Dates: start: 2013, end: 2014
  2. PRAVAFENIX [Suspect]
     Active Substance: FENOFIBRATE\PRAVASTATIN
     Indication: TYPE IIA HYPERLIPIDAEMIA
     Dosage: 1 DOSAGE FORM, QD
     Route: 048
     Dates: start: 201410, end: 201502

REACTIONS (1)
  - Drug intolerance [Unknown]
